FAERS Safety Report 16651308 (Version 1)
Quarter: 2019Q3

REPORT INFORMATION
  Report Type: Spontaneous
  Country: US (occurrence: US)
  Receive Date: 20190617
  Receipt Date: 20190617
  Transmission Date: 20191004
  Serious: Yes (Hospitalization)
  Sender: FDA-Public Use
  Company Number: None

PATIENT
  Age: 68 Year
  Sex: Female

DRUGS (6)
  1. HUMIRA [Suspect]
     Active Substance: ADALIMUMAB
     Indication: RHEUMATOID ARTHRITIS
     Dosage: ?          OTHER FREQUENCY:QOWK;?
     Route: 058
     Dates: start: 20170203
  2. PANTOPRAZOLE TAB [Concomitant]
  3. LLISINOPRIL TAB [Concomitant]
  4. XOPENEX HFA AER [Concomitant]
  5. VALACYCLOVIR TAB [Concomitant]
  6. HYDROCO.APAP TAB [Concomitant]

REACTIONS (1)
  - Road traffic accident [None]

NARRATIVE: CASE EVENT DATE: 20190615
